FAERS Safety Report 20884228 (Version 1)
Quarter: 2022Q2

REPORT INFORMATION
  Report Type: Spontaneous
  Country: JP (occurrence: JP)
  Receive Date: 20220527
  Receipt Date: 20220527
  Transmission Date: 20220721
  Serious: Yes (Other)
  Sender: FDA-Public Use
  Company Number: JP-PFIZER INC-202200767905

PATIENT
  Age: 39 Year
  Sex: Female

DRUGS (6)
  1. EFFEXOR [Suspect]
     Active Substance: VENLAFAXINE HYDROCHLORIDE
  2. TRAZODONE HCL [Suspect]
     Active Substance: TRAZODONE HYDROCHLORIDE
  3. HALCION [Suspect]
     Active Substance: TRIAZOLAM
  4. QUETIAPINE [Suspect]
     Active Substance: QUETIAPINE
  5. LATUDA [Suspect]
     Active Substance: LURASIDONE HYDROCHLORIDE
  6. FLUNITRAZEPAM [Suspect]
     Active Substance: FLUNITRAZEPAM

REACTIONS (2)
  - Dysarthria [Unknown]
  - Speech disorder [Unknown]
